FAERS Safety Report 10959616 (Version 2)
Quarter: 2015Q2

REPORT INFORMATION
  Report Type: Spontaneous
  Country: US (occurrence: US)
  Receive Date: 20150327
  Receipt Date: 20150524
  Transmission Date: 20150821
  Serious: No
  Sender: FDA-Public Use
  Company Number: US-JNJFOC-20100400221

PATIENT
  Age: 46 Year
  Sex: Male
  Weight: 70.31 kg

DRUGS (2)
  1. DURAGESIC [Suspect]
     Active Substance: FENTANYL
     Indication: CANCER PAIN
     Dosage: NDC 50458-035
     Route: 062
     Dates: start: 201003
  2. UNSPECIFIED CANCER MEDICATION [Concomitant]
     Indication: NEOPLASM MALIGNANT
     Route: 065

REACTIONS (4)
  - Product quality issue [Unknown]
  - Therapeutic response decreased [Not Recovered/Not Resolved]
  - Product quality issue [Not Recovered/Not Resolved]
  - Drug ineffective [Not Recovered/Not Resolved]

NARRATIVE: CASE EVENT DATE: 201003
